FAERS Safety Report 5399922-7 (Version None)
Quarter: 2007Q3

REPORT INFORMATION
  Report Type: 
  Country: None (occurrence: None)
  Receive Date: 20070724
  Receipt Date: 20070709
  Transmission Date: 20080115
  Serious: Yes (Other)
  Sender: FDA-Public Use
  Company Number: 2007001237

PATIENT
  Age: 47 Year
  Sex: Male

DRUGS (3)
  1. TARCEVA [Suspect]
     Indication: LUNG ADENOCARCINOMA
     Dosage: 150 MG (QD), ORAL
     Route: 048
  2. CARBOPLATIN [Concomitant]
  3. GEMCITABINE [Concomitant]

REACTIONS (5)
  - COUGH [None]
  - DYSPNOEA [None]
  - INFLAMMATION [None]
  - PLEURAL EFFUSION [None]
  - PYREXIA [None]
